FAERS Safety Report 23443846 (Version 1)
Quarter: 2024Q1

REPORT INFORMATION
  Report Type: Report from Study
  Country: RO (occurrence: RO)
  Receive Date: 20240125
  Receipt Date: 20240125
  Transmission Date: 20240410
  Serious: Yes (Death, Hospitalization, Other)
  Sender: FDA-Public Use
  Company Number: RO-PFIZER INC-PV202300202522

PATIENT
  Sex: Female
  Weight: 73 kg

DRUGS (4)
  1. PALBOCICLIB [Suspect]
     Active Substance: PALBOCICLIB
     Indication: Breast cancer metastatic
     Dosage: 100 MG, CYCLIC (D1-D21)
     Route: 048
     Dates: start: 20200619, end: 20210521
  2. PALBOCICLIB [Suspect]
     Active Substance: PALBOCICLIB
     Dosage: 75 MG, CYCLIC (D1-D21)
     Route: 048
     Dates: start: 20210521, end: 20211111
  3. FULVESTRANT [Suspect]
     Active Substance: FULVESTRANT
     Indication: Metastatic neoplasm
     Dosage: UNK
     Route: 048
     Dates: start: 20200619, end: 20211111
  4. IBANDRONIC ACID [Suspect]
     Active Substance: IBANDRONIC ACID
     Indication: Adjuvant therapy
     Dosage: UNK
     Route: 048
     Dates: start: 20180801, end: 20211111

REACTIONS (3)
  - Anaemia [Fatal]
  - Anaemia [Recovered/Resolved]
  - Neutropenia [Recovered/Resolved]

NARRATIVE: CASE EVENT DATE: 20201215
